FAERS Safety Report 9226494 (Version 3)
Quarter: 2013Q2

REPORT INFORMATION
  Report Type: Spontaneous
  Country: CA (occurrence: CA)
  Receive Date: 20130412
  Receipt Date: 20130603
  Transmission Date: 20140414
  Serious: Yes (Hospitalization)
  Sender: FDA-Public Use
  Company Number: CA-AMGEN-CANSP2013024997

PATIENT
  Age: 60 Year
  Sex: Female

DRUGS (23)
  1. ENBREL [Suspect]
     Indication: RHEUMATOID ARTHRITIS
     Dosage: 50 MG, QWK
     Route: 058
     Dates: start: 20130303
  2. CLONAZEPAM [Concomitant]
     Dosage: UNK
  3. CYCLOBENZAPRINE [Concomitant]
     Dosage: UNK
  4. DILTIAZEM [Concomitant]
     Dosage: UNK
  5. DOMPERIDONE [Concomitant]
     Dosage: UNK
  6. ESTRACE [Concomitant]
     Dosage: UNK
  7. FLUOXETINE [Concomitant]
     Dosage: UNK
  8. GABAPENTIN [Concomitant]
     Dosage: UNK
  9. HYDROMORPHONE [Concomitant]
     Dosage: UNK
  10. THYROXINE [Concomitant]
     Dosage: UNK
  11. LOPERAMIDE [Concomitant]
     Dosage: 2 MG, QD
  12. METFORMIN [Concomitant]
     Dosage: 500 MG, BID
  13. OMEPRAZOLE [Concomitant]
     Dosage: 20 MG, BID
  14. ELMIRON [Concomitant]
     Dosage: 100 MG, TID
  15. SULCRATE [Concomitant]
     Dosage: UNK
  16. TELMISARTAN [Concomitant]
     Dosage: 80 MG, QD
  17. PROBIOTIC                          /06395501/ [Concomitant]
     Dosage: UNK
  18. VITAMIN C                          /00008001/ [Concomitant]
     Dosage: UNK
  19. VITAMIN D                          /00107901/ [Concomitant]
     Dosage: UNK
  20. MULTIVITAMINS, PLAIN [Concomitant]
     Dosage: UNK
  21. HYDROCHLOROTHIAZIDE [Concomitant]
     Dosage: UNK
  22. LEFLUNOMIDE [Concomitant]
     Dosage: 10 MG, QD
  23. SYNTHROID [Concomitant]
     Dosage: 150 MUG, QD

REACTIONS (8)
  - Blood pressure increased [Unknown]
  - Colitis [Recovered/Resolved]
  - Hallucination [Recovered/Resolved]
  - Bacterial infection [Recovered/Resolved]
  - Depressed level of consciousness [Unknown]
  - Fibromyalgia [Not Recovered/Not Resolved]
  - Pain [Unknown]
  - Asthenia [Recovering/Resolving]
